FAERS Safety Report 9943272 (Version 2)
Quarter: 2014Q2

REPORT INFORMATION
  Report Type: Spontaneous
  Country: BR (occurrence: BR)
  Receive Date: 20140303
  Receipt Date: 20140408
  Transmission Date: 20141212
  Serious: Yes (Hospitalization)
  Sender: FDA-Public Use
  Company Number: BR-PFIZER INC-2014053899

PATIENT
  Sex: Male

DRUGS (1)
  1. UPLYSO [Suspect]
     Indication: GAUCHER^S DISEASE
     Dosage: UNK

REACTIONS (2)
  - Road traffic accident [Recovering/Resolving]
  - Lower limb fracture [Recovering/Resolving]
